FAERS Safety Report 6749806-4 (Version None)
Quarter: 2010Q2

REPORT INFORMATION
  Report Type: 
  Country: None (occurrence: None)
  Receive Date: 20100601
  Receipt Date: 20100524
  Transmission Date: 20101027
  Serious: Yes (Hospitalization)
  Sender: FDA-Public Use
  Company Number: JP-MERCK-1005USA00907

PATIENT
  Age: 75 Year
  Sex: Male

DRUGS (4)
  1. JANUVIA [Suspect]
     Indication: DIABETES MELLITUS
     Route: 048
     Dates: start: 20100218, end: 20100506
  2. MELBIN [Concomitant]
     Indication: DIABETES MELLITUS
     Route: 048
     Dates: end: 20100506
  3. SEIBULE [Concomitant]
     Indication: DIABETES MELLITUS
     Route: 048
     Dates: end: 20100506
  4. ACTOS [Concomitant]
     Indication: DIABETES MELLITUS
     Route: 048

REACTIONS (2)
  - ANAEMIA [None]
  - OCCULT BLOOD POSITIVE [None]
